FAERS Safety Report 6575703-3 (Version None)
Quarter: 2010Q1

REPORT INFORMATION
  Report Type: 
  Country: None (occurrence: None)
  Receive Date: 20100209
  Receipt Date: 20100201
  Transmission Date: 20100710
  Serious: Yes (Life-Threatening, Hospitalization)
  Sender: FDA-Public Use
  Company Number: DE-BRISTOL-MYERS SQUIBB COMPANY-14943435

PATIENT
  Age: 85 Year
  Sex: Female

DRUGS (2)
  1. METFORMIN HCL [Suspect]
  2. DICLOFENAC SODIUM [Suspect]

REACTIONS (4)
  - HYPERKALAEMIA [None]
  - LACTIC ACIDOSIS [None]
  - MULTI-ORGAN FAILURE [None]
  - SYSTEMIC INFLAMMATORY RESPONSE SYNDROME [None]
